FAERS Safety Report 4509908-X (Version None)
Quarter: 2004Q4

REPORT INFORMATION
  Report Type: 
  Country: None (occurrence: None)
  Receive Date: 20041119
  Receipt Date: 20041104
  Transmission Date: 20050328
  Serious: Yes (Hospitalization)
  Sender: FDA-Public Use
  Company Number: 205920

PATIENT
  Age: 42 Year
  Sex: Female
  Weight: 41.7309 kg

DRUGS (7)
  1. AVONEX [Suspect]
     Indication: MULTIPLE SCLEROSIS
     Dosage: 30 MCG QW IM
     Route: 030
     Dates: start: 20040423, end: 20040101
  2. AVONEX [Suspect]
     Indication: MULTIPLE SCLEROSIS
     Dosage: 30 MCG QW IM
     Route: 030
     Dates: start: 20040101, end: 20040901
  3. FLOVENT [Concomitant]
  4. DITROPAN XL [Concomitant]
  5. NEURONTIN [Concomitant]
  6. NALTREXONE [Concomitant]
  7. LAMICTAL [Concomitant]

REACTIONS (9)
  - ANOREXIA [None]
  - ARTHRALGIA [None]
  - DEHYDRATION [None]
  - DEPRESSION [None]
  - INFLUENZA LIKE ILLNESS [None]
  - MYALGIA [None]
  - PAIN [None]
  - URINARY TRACT INFECTION [None]
  - WEIGHT DECREASED [None]
